FAERS Safety Report 4871104-4 (Version None)
Quarter: 2005Q4

REPORT INFORMATION
  Report Type: 
  Country: None (occurrence: None)
  Receive Date: 20051229
  Receipt Date: 20051220
  Transmission Date: 20060501
  Serious: Yes (Hospitalization)
  Sender: FDA-Public Use
  Company Number: 2005157701

PATIENT
  Age: 26 Year
  Sex: Female

DRUGS (16)
  1. AZITHROMYCIN [Suspect]
     Indication: PHARYNGITIS
     Dosage: 500 MG, ORAL
     Route: 048
     Dates: start: 20051111, end: 20051113
  2. SOLDEM 1 (GLUCOSE, SODIUM CHLORIDE, SODIUM LACTATE) [Concomitant]
  3. SAXIZON (HYDROCORTISONE SODIUM SUCCINATE) [Concomitant]
  4. ELIETEN (METOCLOPRAMIDE) [Concomitant]
  5. PA (CAFFEINE, PARACETAMOL, PROMETHAZINE METHYLENE DISALICYLATE, SALICY [Concomitant]
  6. ANYRUME S (PARACETAMOL) [Concomitant]
  7. APLACE (TROXIPIDE) [Concomitant]
  8. SODIUM BICARBONATE IN PLASTIC CONTAINER [Concomitant]
  9. ATP/JPN/ (ADENOSINE TRIPHOSPHATE, DISODIUM SALT) [Concomitant]
  10. THIAMINE HCL [Concomitant]
  11. TRAVELMIN (DIPHENHYDRAMINE SALICYLATE, DIPROPHYLLINE) [Concomitant]
  12. GASMOTIN (MOSAPRIDE CITRATE) [Concomitant]
  13. CLEAMINE (AMINOPHENAZONE, CAFFEINE, CYCLIZINE HYDROCHLORIDE, CYCLOBARB [Concomitant]
  14. THIADELA (THIAMINE DISULFIDE) [Concomitant]
  15. SODIUM SALICYLATE ECT [Concomitant]
  16. NEUROTROPIN (ORGAN LYSATE, STANDARDIZED) [Concomitant]

REACTIONS (12)
  - BACK PAIN [None]
  - DIARRHOEA [None]
  - EPSTEIN-BARR VIRUS INFECTION [None]
  - FEELING ABNORMAL [None]
  - HEPATITIS ACUTE [None]
  - HEPATITIS VIRAL [None]
  - INFECTIOUS MONONUCLEOSIS [None]
  - LIVER DISORDER [None]
  - MALAISE [None]
  - NASOPHARYNGITIS [None]
  - PHARYNGITIS [None]
  - PYREXIA [None]
